FAERS Safety Report 5403772-2 (Version None)
Quarter: 2007Q3

REPORT INFORMATION
  Report Type: 
  Country: None (occurrence: None)
  Receive Date: 20070706
  Receipt Date: 20050526
  Transmission Date: 20080115
  Serious: Yes (Other)
  Sender: FDA-Public Use
  Company Number: 411512

PATIENT
  Age: 54 Year
  Sex: Female
  Weight: 72.3 kg

DRUGS (18)
  1. CELLCEPT [Suspect]
     Indication: PROPHYLAXIS
     Dates: end: 20050415
  2. CELLCEPT [Suspect]
     Indication: PROPHYLAXIS AGAINST TRANSPLANT REJECTION
     Dates: end: 20050415
  3. CELLCEPT [Suspect]
     Indication: RENAL TRANSPLANT
     Dates: end: 20050415
  4. PROCRIT [Suspect]
     Indication: NEPHROGENIC ANAEMIA
     Dosage: 20000 UNIT SUBCUTANEOUS
     Route: 058
     Dates: start: 20040103, end: 20050512
  5. EPOGEN [Suspect]
     Indication: NEPHROGENIC ANAEMIA
  6. NEORAL [Suspect]
     Indication: PROPHYLAXIS
     Dosage: 100 MG 2 PER DAY
  7. NEORAL [Suspect]
     Indication: RENAL TRANSPLANT
     Dosage: 100 MG 2 PER DAY
  8. PREDNISONE TAB [Concomitant]
  9. LOPRESSOR [Concomitant]
  10. SYNTHROID [Concomitant]
  11. MAGNESIUM OXIDE (MAGNESIUM OXIDE) [Concomitant]
  12. CALCIUM (CALCIUM) [Concomitant]
  13. LASIX [Concomitant]
  14. HYDRALAZINE HCL [Concomitant]
  15. MUPIROCIN [Concomitant]
  16. LEVOFLOXACIN [Concomitant]
  17. DOXAZOSINE (DOXAZOSINE MESYLATE) [Concomitant]
  18. DOXAZOSIN MESILATE (DOXAZOSIN MESYLATE) [Concomitant]

REACTIONS (6)
  - ANAEMIA OF CHRONIC DISEASE [None]
  - DIVERTICULITIS [None]
  - DRUG SPECIFIC ANTIBODY ABSENT [None]
  - PLATELET COUNT DECREASED [None]
  - THERAPEUTIC RESPONSE DECREASED [None]
  - WHITE BLOOD CELL COUNT DECREASED [None]
